FAERS Safety Report 23821625 (Version 3)
Quarter: 2024Q2

REPORT INFORMATION
  Report Type: Spontaneous
  Country: DE (occurrence: None)
  Receive Date: 20240506
  Receipt Date: 20240614
  Transmission Date: 20240715
  Serious: Yes (Death, Other)
  Sender: FDA-Public Use
  Company Number: 2024A105930

PATIENT
  Age: 25664 Day
  Sex: Male
  Weight: 122 kg

DRUGS (8)
  1. IMFINZI [Suspect]
     Active Substance: DURVALUMAB
     Indication: Hepatocellular carcinoma
     Dosage: 1500 MG EVERY 4 WEEKS
     Route: 042
     Dates: start: 20231024, end: 20240318
  2. LACTULOSE [Concomitant]
     Active Substance: LACTULOSE
     Indication: Hepatic encephalopathy prophylaxis
     Dosage: 20-40ML
     Dates: start: 202309
  3. RIFAXIMIN [Concomitant]
     Active Substance: RIFAXIMIN
     Indication: Hepatic encephalopathy prophylaxis
     Dosage: 550 MG 1-0-1
  4. SPIRONOLACTONE [Concomitant]
     Active Substance: SPIRONOLACTONE
     Indication: Ascites
     Dosage: 550 MG 1-0-1
  5. ASPIRIN [Concomitant]
     Active Substance: ASPIRIN
     Indication: Coronary artery disease
     Dosage: 550 MG 1-0-1
  6. CARVEDILOL [Concomitant]
     Active Substance: CARVEDILOL
     Indication: Portal vein dilatation
     Dosage: 550 MG 1-0-1
  7. SITAGLIPTIN PHOSPHATE [Concomitant]
     Active Substance: SITAGLIPTIN PHOSPHATE
     Indication: Portal vein dilatation
     Dosage: 550 MG 1-0-1
  8. INSULIN NOS [Concomitant]
     Active Substance: INSULIN NOS
     Indication: Portal vein dilatation
     Dosage: 550 MG 1-0-1

REACTIONS (3)
  - Sepsis [Fatal]
  - Myositis [Unknown]
  - Blood test abnormal [Unknown]

NARRATIVE: CASE EVENT DATE: 20240403
